FAERS Safety Report 17154565 (Version 2)
Quarter: 2020Q1

REPORT INFORMATION
  Report Type: Spontaneous
  Country: UA (occurrence: UA)
  Receive Date: 20191214
  Receipt Date: 20200114
  Transmission Date: 20200409
  Serious: Yes (Other)
  Sender: FDA-Public Use
  Company Number: UA-ROCHE-2497584

PATIENT
  Age: 41 Year
  Sex: Female

DRUGS (1)
  1. ALECENSA [Suspect]
     Active Substance: ALECTINIB HYDROCHLORIDE
     Indication: LUNG NEOPLASM MALIGNANT
     Dosage: 600 TWICE PER 24 HOURS
     Route: 065
     Dates: start: 201910

REACTIONS (1)
  - Pulmonary embolism [Recovered/Resolved]
